FAERS Safety Report 12673795 (Version 1)
Quarter: 2016Q3

REPORT INFORMATION
  Report Type: Report from Study
  Country: US (occurrence: US)
  Receive Date: 20160822
  Receipt Date: 20160822
  Transmission Date: 20161109
  Serious: Yes (Hospitalization, Other)
  Sender: FDA-Public Use
  Company Number: US-BIOGEN-2016BI00279235

PATIENT
  Age: 28 Year
  Sex: Female

DRUGS (2)
  1. TYSABRI [Suspect]
     Active Substance: NATALIZUMAB
     Route: 042
     Dates: start: 2016
  2. TYSABRI [Suspect]
     Active Substance: NATALIZUMAB
     Indication: MULTIPLE SCLEROSIS
     Route: 065
     Dates: start: 20160512

REACTIONS (5)
  - Impaired gastric emptying [Recovered/Resolved]
  - Dysphagia [Not Recovered/Not Resolved]
  - Blindness unilateral [Recovered/Resolved]
  - Vision blurred [Not Recovered/Not Resolved]
  - Oesophageal infection [Recovered/Resolved]

NARRATIVE: CASE EVENT DATE: 2016
